FAERS Safety Report 12740471 (Version 1)
Quarter: 2016Q3

REPORT INFORMATION
  Report Type: Spontaneous
  Country: IL (occurrence: IL)
  Receive Date: 20160913
  Receipt Date: 20160913
  Transmission Date: 20161109
  Serious: Yes (Other)
  Sender: FDA-Public Use
  Company Number: IL-ASTRAZENECA-2016SE70769

PATIENT
  Age: 64 Year
  Sex: Female
  Weight: 75 kg

DRUGS (7)
  1. GLUCOMIN [Concomitant]
     Active Substance: METFORMIN HYDROCHLORIDE
     Dosage: 3 TIMES A DAY
  2. BYDUREON [Suspect]
     Active Substance: EXENATIDE
     Indication: TYPE 2 DIABETES MELLITUS
     Dosage: ONCE A WEEK
     Route: 058
     Dates: start: 20160215
  3. LANTUS [Concomitant]
     Active Substance: INSULIN GLARGINE
     Dosage: INS LANTUS
  4. DRUGS FOR HIGH BLOOD PRESSURE [Concomitant]
  5. DRUGS FOR HER THYROID [Concomitant]
  6. INSULIN [Concomitant]
     Active Substance: INSULIN NOS
     Dosage: 30 I/U
  7. CLONEX [Concomitant]

REACTIONS (4)
  - Blood glucose abnormal [Not Recovered/Not Resolved]
  - Suicidal ideation [Unknown]
  - Product use issue [Unknown]
  - Injection site swelling [Unknown]
